FAERS Safety Report 20830801 (Version 1)
Quarter: 2022Q2

REPORT INFORMATION
  Report Type: Spontaneous
  Country: SE (occurrence: SE)
  Receive Date: 20220515
  Receipt Date: 20220515
  Transmission Date: 20220720
  Serious: Yes (Life-Threatening)
  Sender: FDA-Public Use
  Company Number: None

PATIENT
  Age: 33 Year
  Sex: Female

DRUGS (8)
  1. CLOZAPINE [Suspect]
     Active Substance: CLOZAPINE
     Indication: Schizoaffective disorder
     Dosage: 300 MILLIGRAM DAILY; TABL CLOZAPINE 100 MG 0+0+3,CLOZAPINE ACTAVIS 100 MG, UNIT DOSE: 300 MG, FREQUE
     Route: 048
     Dates: start: 20110101, end: 20220310
  2. ARIPIPRAZOLE [Concomitant]
     Active Substance: ARIPIPRAZOLE
     Dosage: 2X1,TABLETS AND OTHER
     Dates: start: 20201127
  3. ATARAX [Concomitant]
     Active Substance: HYDROXYZINE HYDROCHLORIDE
     Dosage: EO,TABLETS AND OTHER
     Dates: start: 20210216
  4. BISOPROLOL FUMARATE [Concomitant]
     Active Substance: BISOPROLOL FUMARATE
     Dosage: 1KL8,DURATION 606 DAYS,TABLETS AND OTHER
     Dates: start: 20200813, end: 20220411
  5. LAMOTRIGINE [Concomitant]
     Active Substance: LAMOTRIGINE
     Dosage: 1KL8,TABLETS AND OTHER
     Dates: start: 20191002
  6. ZOPIKLON PILUM [Concomitant]
     Dosage: 0.5-1 VB,TABLETS AND OTHER
     Dates: start: 20211020
  7. QUETIAPINE [Concomitant]
     Active Substance: QUETIAPINE
     Dosage: 1-4 KL 21 VB,TABLETS AND OTHER,DURATION 53 DAYS
     Dates: start: 20220128, end: 20220322
  8. CLONAZEPAM [Concomitant]
     Active Substance: CLONAZEPAM
     Dosage: 1KL8,TABLETS AND OTHER
     Dates: start: 20211008

REACTIONS (1)
  - Neutropenia [Recovered/Resolved]

NARRATIVE: CASE EVENT DATE: 20220218
